FAERS Safety Report 9852742 (Version 1)
Quarter: 2014Q1

REPORT INFORMATION
  Report Type: Spontaneous
  Country: PL (occurrence: None)
  Receive Date: 20140127
  Receipt Date: 20140127
  Transmission Date: 20141002
  Serious: Yes (Hospitalization)
  Sender: FDA-Public Use
  Company Number: 2014US-77479

PATIENT
  Age: 41 Year
  Sex: Female

DRUGS (6)
  1. PANTOPRAZOLE (PANTOPRAZOLE) UNKNOWN [Suspect]
     Indication: PRODUCT USED FOR UNKNOWN INDICATION
  2. KETOPROFEN (KETOPROFEN) UNKNOWN [Concomitant]
  3. PARACETAMOL/TRAMADOL (PARACETAMOL/TRAMADOL) TABLET [Concomitant]
  4. TOLPERISONE [Suspect]
  5. VITAMIN D (VITAMIN D) UNKNOWN [Concomitant]
  6. FERROUS SULPHATE (FERROUS SULPHATE) TABLET [Concomitant]

REACTIONS (3)
  - Duodenitis [None]
  - Intestinal villi atrophy [None]
  - Drug ineffective [None]
